FAERS Safety Report 10056649 (Version 2)
Quarter: 2014Q2

REPORT INFORMATION
  Report Type: Spontaneous
  Country: CA (occurrence: CA)
  Receive Date: 20140403
  Receipt Date: 20140408
  Transmission Date: 20141212
  Serious: Yes (Death, Hospitalization)
  Sender: FDA-Public Use
  Company Number: CA-PFIZER INC-2014092856

PATIENT
  Age: 87 Year
  Sex: Male
  Weight: 58 kg

DRUGS (20)
  1. CORDARONE [Suspect]
     Dosage: 200 MG, 1 EVERY 1 DAY FOR 9 MONTHS
     Route: 048
  2. CUBICIN [Suspect]
     Dosage: 500 MG, ONCE EVERY 24HOURS FOR 41 DAYS
  3. CUBICIN [Suspect]
     Dosage: 500 MG, ONCE EVERY 48HOURS FOR 11 DAYS
  4. ACETYLSALICYLIC ACID [Concomitant]
     Dosage: UNK
  5. BACTRIM [Concomitant]
     Dosage: UNK
  6. BUPROPION [Concomitant]
     Dosage: UNK
  7. CALCIUM CARBONATE [Concomitant]
     Dosage: UNK
  8. CEFTAZIDIME [Concomitant]
     Dosage: UNK
  9. CITALOPRAM [Concomitant]
     Dosage: UNK
  10. FUROSEMIDE [Concomitant]
     Dosage: UNK
  11. INVANZ [Concomitant]
     Dosage: UNK
  12. ISOSORBIDE MONONITRATE [Concomitant]
     Dosage: UNK
  13. METOPROLOL [Concomitant]
     Dosage: UNK
  14. PANTOPRAZOLE [Concomitant]
     Dosage: UNK
  15. PERINDOPRIL [Concomitant]
     Dosage: UNK
  16. RIFAMPIN [Concomitant]
     Dosage: UNK
  17. RISEDRONATE [Concomitant]
     Dosage: UNK
  18. TAMSULOSIN [Concomitant]
     Dosage: UNK
  19. VITAMIN D [Concomitant]
     Dosage: UNK
  20. ZYVOXAM [Concomitant]
     Dosage: UNK

REACTIONS (3)
  - Hyperthermia [Fatal]
  - Oxygen saturation decreased [Fatal]
  - Pulmonary eosinophilia [Fatal]
